FAERS Safety Report 14035657 (Version 3)
Quarter: 2017Q4

REPORT INFORMATION
  Report Type: Spontaneous
  Country: HU (occurrence: HU)
  Receive Date: 20171003
  Receipt Date: 20171031
  Transmission Date: 20180321
  Serious: Yes (Death, Other)
  Sender: FDA-Public Use
  Company Number: HU-ARIAD-2017HU008994

PATIENT

DRUGS (6)
  1. CYTARABIN [Suspect]
     Active Substance: CYTARABINE
     Indication: ACUTE LYMPHOCYTIC LEUKAEMIA
     Dosage: 500 MG, TID
     Route: 042
     Dates: start: 20170704, end: 20170706
  2. KLION                              /00012501/ [Concomitant]
     Active Substance: METRONIDAZOLE
     Indication: HAEMORRHOIDS
     Dosage: 500 MG, BID
     Route: 048
     Dates: start: 20170719, end: 20170804
  3. FLUDARABIN [Suspect]
     Active Substance: FLUDARABINE PHOSPHATE
     Indication: ACUTE LYMPHOCYTIC LEUKAEMIA
     Dosage: 25 MG, TID
     Route: 042
     Dates: start: 20170704, end: 20170706
  4. ICLUSIG [Suspect]
     Active Substance: PONATINIB
     Indication: ACUTE LYMPHOCYTIC LEUKAEMIA
     Dosage: 45 MG, QD
     Route: 048
     Dates: start: 20170803, end: 20170804
  5. NIVESTIM [Concomitant]
     Active Substance: FILGRASTIM
     Indication: NEUTROPENIA
     Dosage: 48 MILLION IU, BID
     Route: 058
     Dates: start: 20170710, end: 20170804
  6. IDARUBICIN [Suspect]
     Active Substance: IDARUBICIN
     Indication: ACUTE LYMPHOCYTIC LEUKAEMIA
     Dosage: 10 MG, TID
     Route: 042
     Dates: start: 20170704, end: 20170706

REACTIONS (1)
  - Sepsis [Fatal]

NARRATIVE: CASE EVENT DATE: 2017
